FAERS Safety Report 11264838 (Version 1)
Quarter: 2015Q3

REPORT INFORMATION
  Report Type: Spontaneous
  Country: GB (occurrence: None)
  Receive Date: 20150709
  Receipt Date: 20150709
  Transmission Date: 20151125
  Serious: Yes (Other)
  Sender: FDA-Public Use
  Company Number: CO-ZN-UK-2015-024

PATIENT
  Age: 4 Month
  Sex: Female
  Weight: 4.99 kg

DRUGS (3)
  1. RANITIDINE [Suspect]
     Active Substance: RANITIDINE\RANITIDINE HYDROCHLORIDE
     Indication: PRODUCT USED FOR UNKNOWN INDICATION
     Dates: start: 20150611
  2. GAVISCON (UNKNOWN) (SODIUM BICARBONATE, ALUMINUM HYDROXIDE GEL, DRIED, ALGINIC ACI, SODIUM ALGINATE, MAGNESIUM TRISILICATE) [Concomitant]
  3. DOUBLEBASE (UNKNOWN) (ISOPROPYL MYRISTATE, PARAFFIN, LIQUID) [Concomitant]

REACTIONS (2)
  - Rash macular [None]
  - Hypersensitivity [None]

NARRATIVE: CASE EVENT DATE: 20150611
